FAERS Safety Report 8988052 (Version 2)
Quarter: 2013Q3

REPORT INFORMATION
  Report Type: Spontaneous
  Country: AU (occurrence: AU)
  Receive Date: 20121227
  Receipt Date: 20130725
  Transmission Date: 20140515
  Serious: Yes (Hospitalization)
  Sender: FDA-Public Use
  Company Number: AU-CELGENEUS-008-21880-12121731

PATIENT
  Age: 56 Year
  Sex: Male

DRUGS (6)
  1. REVLIMID [Suspect]
     Indication: PLASMA CELL MYELOMA
     Dosage: 21 DAYS PM
     Route: 048
     Dates: start: 20070702, end: 20070926
  2. REVLIMID [Suspect]
     Dosage: 21 DAYS PM
     Route: 048
     Dates: start: 20071024, end: 20090818
  3. DEXAMETHASONE [Concomitant]
     Indication: PLASMA CELL MYELOMA
     Route: 065
     Dates: start: 200707
  4. ALLOPURINOL [Concomitant]
     Indication: NEPHROPATHY
     Dosage: 100 MILLIGRAM
     Route: 065
  5. TRAMADOL [Concomitant]
     Indication: BONE PAIN
     Route: 065
  6. PARACETAMOL [Concomitant]
     Indication: BONE PAIN
     Dosage: PRN
     Route: 065

REACTIONS (3)
  - Diverticular perforation [Recovered/Resolved]
  - Peritonitis [Recovered/Resolved]
  - Plasma cell myeloma [Unknown]
